FAERS Safety Report 9850515 (Version 1)
Quarter: 2013Q4

REPORT INFORMATION
  Report Type: Spontaneous
  Country: US (occurrence: None)
  Receive Date: 20131226
  Receipt Date: 20131226
  Transmission Date: 20140711
  Serious: No
  Sender: FDA-Public Use
  Company Number: PHEH2013US004244

PATIENT
  Sex: Female

DRUGS (6)
  1. GILENYA (FINGOLIMOD) CAPSULE, 0.5MG [Suspect]
     Indication: RELAPSING-REMITTING MULTIPLE SCLEROSIS
     Route: 048
  2. PROPRANOLOL (PROPRANOLOL) TABLET, 10 MG [Concomitant]
  3. AMBIEN (ZOLPIDEM TARTRATE) TABLET, 5 MG [Concomitant]
  4. WELLBUTRIN (BUPROPION HYDROCHLORIDE) TABLET, 75 MG [Concomitant]
  5. VITAMIN E (TOCOPHEROL) [Concomitant]
  6. CALCIUM (CALCIUM) TABLET [Concomitant]

REACTIONS (2)
  - Tremor [None]
  - Dizziness [None]
